FAERS Safety Report 9617300 (Version 1)
Quarter: 2013Q4

REPORT INFORMATION
  Report Type: Spontaneous
  Country: US (occurrence: US)
  Receive Date: 20131011
  Receipt Date: 20131011
  Transmission Date: 20140711
  Serious: No
  Sender: FDA-Public Use
  Company Number: US-TEVA-437508USA

PATIENT
  Sex: Female
  Weight: 72.19 kg

DRUGS (5)
  1. QVAR [Suspect]
     Indication: BRONCHITIS CHRONIC
  2. QVAR [Suspect]
     Indication: CHRONIC OBSTRUCTIVE PULMONARY DISEASE
  3. SPIRIVA [Concomitant]
     Indication: BRONCHITIS CHRONIC
  4. SPIRIVA [Concomitant]
     Indication: CHRONIC OBSTRUCTIVE PULMONARY DISEASE
  5. SINGULAIR [Concomitant]
     Indication: HYPERSENSITIVITY

REACTIONS (3)
  - Oral pain [Recovered/Resolved]
  - Dysphonia [Recovered/Resolved]
  - Body height decreased [Unknown]
